FAERS Safety Report 4941590-X (Version None)
Quarter: 2006Q1

REPORT INFORMATION
  Report Type: 
  Country: None (occurrence: None)
  Receive Date: 20060308
  Receipt Date: 20060227
  Transmission Date: 20060701
  Serious: Yes (Death)
  Sender: FDA-Public Use
  Company Number: 2006JP000512

PATIENT

DRUGS (1)
  1. PROGRAF [Suspect]
     Indication: BONE MARROW TRANSPLANT

REACTIONS (4)
  - COMPLICATIONS OF BONE MARROW TRANSPLANT [None]
  - DIARRHOEA [None]
  - MELAENA [None]
  - PNEUMONIA [None]
